FAERS Safety Report 11246914 (Version 1)
Quarter: 2015Q3

REPORT INFORMATION
  Report Type: Spontaneous
  Country: US (occurrence: US)
  Receive Date: 20150708
  Receipt Date: 20150708
  Transmission Date: 20151125
  Serious: No
  Sender: FDA-Public Use
  Company Number: US-HOSPIRA-2925009

PATIENT
  Age: 35 Year
  Sex: Female

DRUGS (3)
  1. LEXAPRO [Concomitant]
     Active Substance: ESCITALOPRAM OXALATE
     Indication: DEPRESSION
     Dosage: QD; STARTED 1 1/2 YEARS AGO
     Route: 048
  2. TOPAMAX [Concomitant]
     Active Substance: TOPIRAMATE
     Indication: MIGRAINE
     Route: 048
     Dates: start: 201410
  3. KETOROLAC [Suspect]
     Active Substance: KETOROLAC\KETOROLAC TROMETHAMINE
     Indication: MIGRAINE
     Route: 030
     Dates: start: 201412

REACTIONS (5)
  - Product quality issue [Recovering/Resolving]
  - Myalgia [Recovering/Resolving]
  - Enzyme level increased [Unknown]
  - Hypoaesthesia [Recovering/Resolving]
  - Poor quality drug administered [Recovering/Resolving]

NARRATIVE: CASE EVENT DATE: 201412
